FAERS Safety Report 24148343 (Version 1)
Quarter: 2024Q3

REPORT INFORMATION
  Report Type: Spontaneous
  Country: US (occurrence: US)
  Receive Date: 20240729
  Receipt Date: 20240729
  Transmission Date: 20241017
  Serious: No
  Sender: PFIZER
  Company Number: US-PFIZER INC-202400223679

PATIENT
  Age: 88 Year
  Sex: Female

DRUGS (18)
  1. IBRANCE [Suspect]
     Active Substance: PALBOCICLIB
     Dosage: 100 MG, DAILY
     Dates: start: 20240628
  2. OTEZLA [Suspect]
     Active Substance: APREMILAST
     Dosage: 100 MG, 1 TABLET TWICE A DAY
  3. RETINOL [Concomitant]
     Active Substance: RETINOL
     Dosage: 3 MG
  4. FAMOTIDINE [Concomitant]
     Active Substance: FAMOTIDINE
     Dosage: 20 MG
  5. SOLIFENACIN SUCCINATE [Concomitant]
     Active Substance: SOLIFENACIN SUCCINATE
     Dosage: 10 MG
  6. ZINC SULFATE [Concomitant]
     Active Substance: ZINC SULFATE
     Dosage: 220 MG
  7. ROSUVASTATIN [Concomitant]
     Active Substance: ROSUVASTATIN\ROSUVASTATIN CALCIUM
     Dosage: 10 MG
  8. VITAMIN B12 [Concomitant]
     Active Substance: CYANOCOBALAMIN
     Dosage: UNK
  9. FLUTICASONE [Concomitant]
     Active Substance: FLUTICASONE
     Dosage: 50 UG
  10. BUDESONIDE [Concomitant]
     Active Substance: BUDESONIDE
     Dosage: 32 UG
  11. VITAMIN D NOS [Concomitant]
     Active Substance: CHOLECALCIFEROL\ERGOCALCIFEROL
     Dosage: 25 UG
  12. ASCORBIC ACID [Concomitant]
     Active Substance: ASCORBIC ACID
     Dosage: 500 MG
  13. OCUVITE EXTRA [Concomitant]
     Dosage: UNK
  14. HALOBETASOL [Concomitant]
     Active Substance: HALOBETASOL
     Dosage: UNK
  15. ALLOPURINOL [Concomitant]
     Active Substance: ALLOPURINOL
     Dosage: 100 MG
  16. ANASTROZOLE [Concomitant]
     Active Substance: ANASTROZOLE
     Dosage: 1 MG
  17. METFORMIN [Concomitant]
     Active Substance: METFORMIN HYDROCHLORIDE
     Dosage: 500 MG
  18. VALSARTAN [Concomitant]
     Active Substance: VALSARTAN
     Dosage: 160 MG

REACTIONS (1)
  - Decreased appetite [Recovering/Resolving]

NARRATIVE: CASE EVENT DATE: 20240701
